FAERS Safety Report 4604009-4 (Version None)
Quarter: 2005Q1

REPORT INFORMATION
  Report Type: 
  Country: None (occurrence: None)
  Receive Date: 20050310
  Receipt Date: 20050228
  Transmission Date: 20050727
  Serious: Yes (Hospitalization)
  Sender: FDA-Public Use
  Company Number: BE-BRISTOL-MYERS SQUIBB COMPANY-12888194

PATIENT
  Age: 60 Year
  Sex: Female

DRUGS (4)
  1. CETUXIMAB [Suspect]
     Indication: COLORECTAL CANCER METASTATIC
     Dosage: MOST RECENT TX DATE: 24-FEB-05. PT HAD REC'D 24 INFUSIONS TO DATE.
     Route: 041
     Dates: start: 20040917
  2. IRINOTECAN HCL [Suspect]
     Indication: COLORECTAL CANCER METASTATIC
     Dosage: MOST RECENT TX DATE: 17-FEB-05. PT HAD REC'D 12 INFUSIONS TO DATE.
     Route: 041
     Dates: start: 20040917
  3. FOLINIC ACID [Suspect]
     Indication: COLORECTAL CANCER METASTATIC
     Dosage: MOST RECENT TX DATE: 17-FEB-05.  PT HAD REC'D 12 INFUSIONS TO DATE.
     Route: 042
     Dates: start: 20040917
  4. FLUOROURACIL [Suspect]
     Indication: COLORECTAL CANCER METASTATIC
     Dosage: MOST RECENT TX DATE: 17-FEB-05. PT HAD REC'D 12 INFUSIONS TO DATE.
     Route: 042
     Dates: start: 20040917

REACTIONS (2)
  - HYPOCALCAEMIA [None]
  - HYPOMAGNESAEMIA [None]
